FAERS Safety Report 12124147 (Version 1)
Quarter: 2016Q1

REPORT INFORMATION
  Report Type: Spontaneous
  Country: US (occurrence: None)
  Receive Date: 20160226
  Receipt Date: 20160226
  Transmission Date: 20160526
  Serious: No
  Sender: FDA-Public Use
  Company Number: None

PATIENT
  Age: 46 Year
  Sex: Male

DRUGS (2)
  1. VIEKIRA PAK [Concomitant]
     Active Substance: DASABUVIR\OMBITASVIR\PARITAPREVIR\RITONAVIR
  2. RIBAVIRIN. [Suspect]
     Active Substance: RIBAVIRIN
     Indication: HEPATITIS C
     Dosage: 3 CAP QAM PO?2 CAP QPM?
     Dates: start: 20160205

REACTIONS (4)
  - Mental disorder [None]
  - Anxiety [None]
  - Palpitations [None]
  - Memory impairment [None]

NARRATIVE: CASE EVENT DATE: 20160211
